FAERS Safety Report 10654642 (Version 2)
Quarter: 2014Q4

REPORT INFORMATION
  Report Type: Spontaneous
  Country: JP (occurrence: JP)
  Receive Date: 20141216
  Receipt Date: 20141216
  Transmission Date: 20150529
  Serious: Yes (Death, Life-Threatening)
  Sender: FDA-Public Use
  Company Number: JP-MALLINCKRODT-T201403956

PATIENT
  Age: 71 Year
  Sex: Male
  Weight: 57.5 kg

DRUGS (7)
  1. ARTIST [Concomitant]
     Active Substance: CARVEDILOL
     Dosage: 10 MG/UNKNOWN
  2. URSO [Concomitant]
     Active Substance: URSODIOL
     Dosage: 100 MG/UNKNOWN
  3. BAYASPIRIN [Concomitant]
     Active Substance: ASPIRIN
     Dosage: 100 MG/UNKNOWN
  4. PROTECADIN [Concomitant]
     Active Substance: LAFUTIDINE
     Dosage: 10 MG/UNKNOWN
  5. OPTIRAY 320 [Suspect]
     Active Substance: IOVERSOL
     Indication: COMPUTERISED TOMOGRAM
     Dosage: 100 ML, SINGLE
     Route: 042
     Dates: start: 20141031, end: 20141031
  6. NICORANDIL [Concomitant]
     Active Substance: NICORANDIL
     Dosage: 5 MG/UNKNOWN
  7. ADALAT [Concomitant]
     Active Substance: NIFEDIPINE
     Dosage: 20 MG/UNKNOWN

REACTIONS (7)
  - Blood pressure decreased [Fatal]
  - Pallor [Unknown]
  - Feeling abnormal [Unknown]
  - Cardiac arrest [Fatal]
  - Depressed level of consciousness [Fatal]
  - Cough [Unknown]
  - Sneezing [Unknown]

NARRATIVE: CASE EVENT DATE: 20141031
